FAERS Safety Report 6545283-7 (Version None)
Quarter: 2010Q1

REPORT INFORMATION
  Report Type: 
  Country: None (occurrence: None)
  Receive Date: 20100114
  Receipt Date: 20090825
  Transmission Date: 20100710
  Serious: No
  Sender: FDA-Public Use
  Company Number: 2009BM000204

PATIENT
  Age: 7 Year
  Sex: Male
  Weight: 40.2 kg

DRUGS (2)
  1. KUVAN [Suspect]
     Indication: PHENYLKETONURIA
     Dosage: 700 MG;QD;PO ; 700 MG;QD;PO
     Route: 048
     Dates: start: 20081223, end: 20090801
  2. KUVAN [Suspect]
     Indication: PHENYLKETONURIA
     Dosage: 700 MG;QD;PO ; 700 MG;QD;PO
     Route: 048
     Dates: start: 20090901

REACTIONS (1)
  - ALOPECIA [None]
